FAERS Safety Report 23187162 (Version 2)
Quarter: 2023Q4

REPORT INFORMATION
  Report Type: Report from Study
  Country: AU (occurrence: AU)
  Receive Date: 20231115
  Receipt Date: 20231121
  Transmission Date: 20240110
  Serious: Yes (Hospitalization)
  Sender: FDA-Public Use
  Company Number: AU-002147023-NVSC2023AU240460

PATIENT
  Age: 73 Year
  Sex: Male

DRUGS (11)
  1. PLUVICTO [Suspect]
     Active Substance: LUTETIUM LU-177 VIPIVOTIDE TETRAXETAN
     Indication: Prostate cancer metastatic
     Dosage: 5.9 GBQ
     Route: 042
     Dates: start: 20230620
  2. NIVOLUMAB [Suspect]
     Active Substance: NIVOLUMAB
     Indication: Prostate cancer metastatic
     Dosage: 94 MG
     Route: 042
     Dates: start: 20230614
  3. IPILIMUMAB [Suspect]
     Active Substance: IPILIMUMAB
     Indication: Prostate cancer metastatic
     Dosage: 281 MG
     Route: 042
     Dates: start: 20230614
  4. COLOXYL WITH SENNA [Concomitant]
     Indication: Prophylaxis
     Dosage: 8 MG, TWICE A DAY
     Route: 048
     Dates: start: 2022
  5. PANTOPRAZOLE SODIUM [Concomitant]
     Active Substance: PANTOPRAZOLE SODIUM
     Indication: Chronic disease
     Dosage: 40 MG, ONCE A DAY
     Route: 048
     Dates: start: 202202
  6. ACETAMINOPHEN [Concomitant]
     Active Substance: ACETAMINOPHEN
     Indication: Product used for unknown indication
     Dosage: 500 MG, FOUR TIMES A  DAY
     Route: 048
     Dates: start: 202203
  7. MS CONTIN [Concomitant]
     Active Substance: MORPHINE SULFATE
     Indication: Product used for unknown indication
     Dosage: 15 MG, ONCE A DAY
     Route: 048
     Dates: start: 202203
  8. LEUPROLIDE ACETATE [Concomitant]
     Active Substance: LEUPROLIDE ACETATE
     Indication: Product used for unknown indication
     Dosage: 45 MG, 3 MONTHLY
     Route: 030
     Dates: start: 202206
  9. CALTRATE [Concomitant]
     Active Substance: CALCIUM CARBONATE
     Indication: Product used for unknown indication
     Dosage: 600 MG, TWICE A DAY
     Route: 048
     Dates: start: 2022
  10. DENOSUMAB [Concomitant]
     Active Substance: DENOSUMAB
     Indication: Product used for unknown indication
     Dosage: 120 MG, 4 WEEKLY
     Route: 058
     Dates: start: 20230123
  11. MIRTAZAPINE [Concomitant]
     Active Substance: MIRTAZAPINE
     Indication: Product used for unknown indication
     Dosage: 15 MG, ONCE A DAY
     Route: 048
     Dates: start: 202307

REACTIONS (3)
  - Hypocalcaemia [Recovered/Resolved]
  - Hypocalcaemia [Recovered/Resolved]
  - Hypocalcaemia [Recovered/Resolved]

NARRATIVE: CASE EVENT DATE: 20231023
